FAERS Safety Report 4385846-0 (Version None)
Quarter: 2004Q2

REPORT INFORMATION
  Report Type: 
  Country: None (occurrence: None)
  Receive Date: 20040628
  Receipt Date: 20031107
  Transmission Date: 20050107
  Serious: Yes (Other)
  Sender: FDA-Public Use
  Company Number: 12429718

PATIENT
  Age: 30 Year
  Sex: Male

DRUGS (4)
  1. BLEOMYCIN [Suspect]
     Indication: HODGKIN'S DISEASE
  2. DACARBAZINE [Suspect]
     Indication: HODGKIN'S DISEASE
  3. ADRIACIN [Concomitant]
     Indication: HODGKIN'S DISEASE
  4. EXSAL [Concomitant]
     Indication: HODGKIN'S DISEASE

REACTIONS (1)
  - NEPHRITIS INTERSTITIAL [None]
